FAERS Safety Report 18531128 (Version 1)
Quarter: 2020Q4

REPORT INFORMATION
  Report Type: Report from Study
  Country: MX (occurrence: MX)
  Receive Date: 20201122
  Receipt Date: 20201122
  Transmission Date: 20210114
  Serious: Yes (Other)
  Sender: FDA-Public Use
  Company Number: NVSC2020MX288162

PATIENT
  Age: 56 Year
  Sex: Male
  Weight: 87 kg

DRUGS (10)
  1. ENTRESTO [Suspect]
     Active Substance: SACUBITRIL\VALSARTAN
     Indication: CARDIAC DISORDER
     Dosage: UNK
     Route: 065
  2. METFORMIN [Concomitant]
     Active Substance: METFORMIN HYDROCHLORIDE
     Indication: DIABETES MELLITUS
     Dosage: 850 MG, BID(4 YEARS AGO) (1 IN THE MORNING AND 1 AT NIGHT) (MANUFACTURER: PISA)
     Route: 048
  3. GLIBENCLAMID [Concomitant]
     Active Substance: GLYBURIDE
     Indication: DIABETES MELLITUS
     Dosage: 5 MG, BID(4 YEARS AGO) (1 IN THE MORNING AND 1 AT NIGHT)
     Route: 048
  4. MICCIL [Concomitant]
     Indication: CARDIAC DISORDER
     Dosage: 1 G, QD
     Route: 065
     Dates: start: 201909
  5. VALVULAN [Concomitant]
     Indication: CARDIAC DISORDER
     Dosage: 0.25 MG, QD
     Route: 048
     Dates: start: 201909
  6. ENTRESTO [Suspect]
     Active Substance: SACUBITRIL\VALSARTAN
     Indication: ARRHYTHMIA
     Dosage: 0.5 DF, QD (1/2 (100MG))
     Route: 048
     Dates: start: 201909
  7. TELMISARTAN. [Concomitant]
     Active Substance: TELMISARTAN
     Indication: BLOOD PRESSURE ABNORMAL
     Dosage: 2 DF, QD (40 MG, 4 YEARS AGO) (IN THE MORNING) (MANUFACTURER: PISA)
     Route: 048
  8. VIVITAR [Concomitant]
     Active Substance: SPIRONOLACTONE
     Indication: CARDIAC DISORDER
     Dosage: 25 MG, QD
     Route: 048
     Dates: start: 201909
  9. ASCORBIC ACID. [Concomitant]
     Active Substance: ASCORBIC ACID
     Indication: VITAMIN SUPPLEMENTATION
     Dosage: 2 DF, QD (2 MG) (MANUFACTURER: PHAMA)
     Route: 048
     Dates: start: 202008
  10. ASPIRINE PROTECT [Concomitant]
     Active Substance: ASPIRIN
     Indication: CARDIAC DISORDER
     Dosage: 100 MG, QN
     Route: 048
     Dates: start: 201909

REACTIONS (5)
  - Product prescribing error [Unknown]
  - Wrong technique in product usage process [Unknown]
  - Underdose [Unknown]
  - Pneumonia [Recovered/Resolved]
  - Product use in unapproved indication [Unknown]

NARRATIVE: CASE EVENT DATE: 201912
